FAERS Safety Report 22058269 (Version 1)
Quarter: 2023Q1

REPORT INFORMATION
  Report Type: Spontaneous
  Country: CN (occurrence: CN)
  Receive Date: 20230303
  Receipt Date: 20230303
  Transmission Date: 20230417
  Serious: Yes (Life-Threatening, Other)
  Sender: FDA-Public Use
  Company Number: CN-SA-SAC20230302000269

PATIENT
  Age: 58 Year
  Sex: Female

DRUGS (1)
  1. PLAVIX [Suspect]
     Active Substance: CLOPIDOGREL BISULFATE
     Indication: Arteriosclerosis coronary artery
     Dosage: 75 MG, QD
     Route: 048
     Dates: start: 20230209, end: 20230209

REACTIONS (7)
  - Respiratory failure [Recovering/Resolving]
  - Chest discomfort [Recovering/Resolving]
  - Wheezing [Recovering/Resolving]
  - Hyperhidrosis [Recovering/Resolving]
  - Asthma [Recovering/Resolving]
  - Hypersensitivity [Recovering/Resolving]
  - Eye movement disorder [Recovering/Resolving]

NARRATIVE: CASE EVENT DATE: 20230209
